FAERS Safety Report 22313710 (Version 1)
Quarter: 2023Q2

REPORT INFORMATION
  Report Type: Report from Study
  Country: US (occurrence: US)
  Receive Date: 20230512
  Receipt Date: 20230512
  Transmission Date: 20230722
  Serious: Yes (Hospitalization)
  Sender: FDA-Public Use
  Company Number: US-JNJFOC-20230244320

PATIENT
  Age: 46 Year
  Sex: Female
  Weight: 61.4 kg

DRUGS (7)
  1. EPOPROSTENOL SODIUM [Suspect]
     Active Substance: EPOPROSTENOL SODIUM
     Indication: Pulmonary arterial hypertension
     Route: 042
  2. EPOPROSTENOL SODIUM [Suspect]
     Active Substance: EPOPROSTENOL SODIUM
     Route: 042
  3. EPOPROSTENOL SODIUM [Suspect]
     Active Substance: EPOPROSTENOL SODIUM
     Dosage: 6 NG/KG/MIN
     Route: 042
  4. EPOPROSTENOL SODIUM [Suspect]
     Active Substance: EPOPROSTENOL SODIUM
     Route: 042
  5. SILDENAFIL CITRATE [Concomitant]
     Active Substance: SILDENAFIL CITRATE
  6. DILTIAZEM [Concomitant]
     Active Substance: DILTIAZEM
  7. ELIQUIS [Concomitant]
     Active Substance: APIXABAN

REACTIONS (11)
  - Hypertension [Unknown]
  - Hypervolaemia [Unknown]
  - Device occlusion [Unknown]
  - Hospitalisation [Unknown]
  - Peritoneal dialysis [Unknown]
  - Asthenia [Unknown]
  - Hypotension [Recovered/Resolved]
  - Abnormal weight gain [Unknown]
  - Nasopharyngitis [Unknown]
  - Oedema peripheral [Unknown]
  - Underdose [Unknown]

NARRATIVE: CASE EVENT DATE: 20230427
